FAERS Safety Report 8537896-8 (Version None)
Quarter: 2012Q3

REPORT INFORMATION
  Report Type: 
  Country: None (occurrence: None)
  Receive Date: 20120725
  Receipt Date: 20120720
  Transmission Date: 20120928
  Serious: Yes (Other)
  Sender: FDA-Public Use
  Company Number: US-GLAXOSMITHKLINE-A0980809A

PATIENT
  Age: 45 Year
  Sex: Female

DRUGS (5)
  1. VITAMIN TAB [Concomitant]
  2. VENTOLIN HFA [Concomitant]
  3. NASONEX [Concomitant]
  4. ADVAIR DISKUS 100/50 [Suspect]
     Indication: ASTHMA
     Dosage: 1PUFF TWICE PER DAY
     Route: 055
     Dates: start: 20010101
  5. UNSPECIFIED TREATMENT [Concomitant]

REACTIONS (6)
  - ASTHMA [None]
  - WHEEZING [None]
  - CHEST DISCOMFORT [None]
  - PRODUCT QUALITY ISSUE [None]
  - COUGH [None]
  - THROAT TIGHTNESS [None]
